FAERS Safety Report 5369676-9 (Version None)
Quarter: 2007Q2

REPORT INFORMATION
  Report Type: 
  Country: None (occurrence: None)
  Receive Date: 20070625
  Receipt Date: 20070613
  Transmission Date: 20071010
  Serious: Yes (Other)
  Sender: FDA-Public Use
  Company Number: LT-PFIZER INC-2007048717

PATIENT
  Age: 61 Year
  Sex: Male

DRUGS (2)
  1. XALATAN [Suspect]
     Indication: GLAUCOMA
     Dosage: DAILY DOSE:1DROP
  2. XALACOM [Suspect]
     Indication: GLAUCOMA
     Dosage: DAILY DOSE:1DROP
     Route: 047
     Dates: start: 20070418, end: 20070508

REACTIONS (2)
  - EYE PRURITUS [None]
  - INTRAOCULAR PRESSURE INCREASED [None]
